FAERS Safety Report 25995485 (Version 1)
Quarter: 2025Q4

REPORT INFORMATION
  Report Type: Spontaneous
  Country: US (occurrence: None)
  Receive Date: 20251103
  Receipt Date: 20251103
  Transmission Date: 20260117
  Serious: Yes (Other)
  Sender: FDA-CTU
  Company Number: None

PATIENT
  Age: 61 Year
  Sex: Female

DRUGS (1)
  1. TYMLOS [Suspect]
     Active Substance: ABALOPARATIDE
     Indication: Osteoporosis
     Dosage: 80 MICROGAM(S) - UGM DAILY SUBCUTNEOUS?
     Route: 058
     Dates: start: 20250514

REACTIONS (2)
  - Headache [None]
  - Heart rate increased [None]

NARRATIVE: CASE EVENT DATE: 20250901
